FAERS Safety Report 13572040 (Version 3)
Quarter: 2017Q3

REPORT INFORMATION
  Report Type: Report from Study
  Country: US (occurrence: US)
  Receive Date: 20170523
  Receipt Date: 20170810
  Transmission Date: 20171127
  Serious: Yes (Other)
  Sender: FDA-Public Use
  Company Number: PHEH2017US015333

PATIENT
  Age: 84 Year
  Sex: Male
  Weight: 92 kg

DRUGS (2)
  1. ENTRESTO [Suspect]
     Active Substance: SACUBITRIL\VALSARTAN
     Indication: CARDIAC FAILURE CHRONIC
     Dosage: 1 DF (SACUBITRIL 24 MG, VALSARTAN 26 MG), QD
     Route: 048
     Dates: start: 20170413, end: 20170713
  2. FUROSEMIDE. [Concomitant]
     Active Substance: FUROSEMIDE
     Indication: PRODUCT USED FOR UNKNOWN INDICATION
     Route: 065

REACTIONS (9)
  - Blood pressure fluctuation [Unknown]
  - Weight increased [Unknown]
  - Dizziness [Recovering/Resolving]
  - Blood pressure systolic increased [Unknown]
  - Drug interaction [Unknown]
  - Underdose [Unknown]
  - Hip fracture [Unknown]
  - Hypotension [Recovering/Resolving]
  - Inappropriate schedule of drug administration [Unknown]

NARRATIVE: CASE EVENT DATE: 20170413
